FAERS Safety Report 7850969-8 (Version None)
Quarter: 2011Q4

REPORT INFORMATION
  Report Type: 
  Country: None (occurrence: None)
  Receive Date: 20111026
  Receipt Date: 20111018
  Transmission Date: 20120403
  Serious: Yes (Other)
  Sender: FDA-Public Use
  Company Number: US-JNJFOC-20111008338

PATIENT
  Sex: Female

DRUGS (3)
  1. CORTICOSTEROID UNSPECIFIED [Suspect]
     Indication: PREMEDICATION
     Route: 065
  2. DOXORUBICIN HCL [Suspect]
     Indication: BREAST CANCER METASTATIC
     Route: 042
     Dates: end: 20110101
  3. TAXOTERE [Suspect]
     Indication: BREAST CANCER METASTATIC
     Route: 065

REACTIONS (7)
  - MOVEMENT DISORDER [None]
  - OEDEMA PERIPHERAL [None]
  - ERYTHEMA [None]
  - FEELING ABNORMAL [None]
  - BLOOD TEST ABNORMAL [None]
  - DEPRESSED MOOD [None]
  - SKIN CHAPPED [None]
